FAERS Safety Report 10178580 (Version 1)
Quarter: 2014Q2

REPORT INFORMATION
  Report Type: Spontaneous
  Country: US (occurrence: US)
  Receive Date: 20140519
  Receipt Date: 20140519
  Transmission Date: 20141212
  Serious: Yes (Death, Hospitalization)
  Sender: FDA-Public Use
  Company Number: US-SA-2014SA060715

PATIENT
  Age: 52 Year
  Sex: Male

DRUGS (4)
  1. FABRAZYME [Suspect]
     Indication: FABRY^S DISEASE
     Route: 042
  2. ACE INHIBITOR NOS [Concomitant]
  3. ANTITHROMBOTIC AGENTS [Concomitant]
  4. IMMUNOSUPPRESSIVE AGENTS [Concomitant]
     Indication: RENAL TRANSPLANT

REACTIONS (2)
  - Cardiac arrest [Fatal]
  - Heart valve replacement [Unknown]
